FAERS Safety Report 26060646 (Version 1)
Quarter: 2025Q4

REPORT INFORMATION
  Report Type: Spontaneous
  Country: US (occurrence: US)
  Receive Date: 20251118
  Receipt Date: 20251118
  Transmission Date: 20260117
  Serious: No
  Sender: SANOFI AVENTIS
  Company Number: US-SA-2025SA341787

PATIENT
  Age: 24 Year
  Sex: Male

DRUGS (2)
  1. LANTUS SOLOSTAR [Suspect]
     Active Substance: INSULIN GLARGINE
     Indication: Diabetic ketoacidosis
     Dosage: 55 IU, QD
     Route: 058
  2. MERILOG [Suspect]
     Active Substance: INSULIN ASPART-SZJJ
     Indication: Diabetic ketoacidosis
     Dosage: 10 IU, TID
     Route: 058

REACTIONS (1)
  - Off label use [Unknown]
